FAERS Safety Report 9677879 (Version 2)
Quarter: 2013Q4

REPORT INFORMATION
  Report Type: Report from Study
  Country: TR (occurrence: TR)
  Receive Date: 20131108
  Receipt Date: 20131127
  Transmission Date: 20140711
  Serious: Yes (Death)
  Sender: FDA-Public Use
  Company Number: TR-ROCHE-1299397

PATIENT
  Age: 59 Year
  Sex: Male
  Weight: 70 kg

DRUGS (6)
  1. TRASTUZUMAB [Suspect]
     Indication: HER-2 POSITIVE GASTRIC CANCER
     Dosage: DATE OF  LAST DOSE: 24/OCT/2013
     Route: 042
     Dates: start: 20131024
  2. FLUOROURACIL [Suspect]
     Indication: HER-2 POSITIVE GASTRIC CANCER
     Route: 042
     Dates: start: 20131024
  3. CISPLATIN [Suspect]
     Indication: HER-2 POSITIVE GASTRIC CANCER
     Route: 042
     Dates: start: 20131024
  4. NORVASC [Concomitant]
     Indication: HYPERTENSION
     Dosage: ROUTE:POR
     Route: 065
  5. GLIFOR [Concomitant]
     Indication: DIABETES MELLITUS
     Dosage: ROUTE:POR
     Route: 065
  6. PLACEBO [Suspect]
     Indication: HER-2 POSITIVE GASTRIC CANCER
     Dosage: LAST DOSE PRIOR TO SAE:24/OCT/2013
     Route: 042
     Dates: start: 20131024

REACTIONS (1)
  - Pulmonary embolism [Fatal]
